FAERS Safety Report 5698301-2 (Version None)
Quarter: 2008Q2

REPORT INFORMATION
  Report Type: 
  Country: None (occurrence: None)
  Receive Date: 20080408
  Receipt Date: 20080402
  Transmission Date: 20081010
  Serious: Yes (Other)
  Sender: FDA-Public Use
  Company Number: US-BOEHRINGER INGELHEIM GMBH, GERMANY-2008-BP-05254BP

PATIENT
  Sex: Male

DRUGS (3)
  1. SPIRIVA [Suspect]
     Indication: CHRONIC OBSTRUCTIVE PULMONARY DISEASE
     Dates: start: 20080103, end: 20080123
  2. ALBUTEROL SULFATE [Concomitant]
     Indication: DYSPNOEA
  3. ALBUTEROL [Concomitant]
     Indication: DYSPNOEA

REACTIONS (2)
  - ADVERSE DRUG REACTION [None]
  - HEART RATE INCREASED [None]
